FAERS Safety Report 10071085 (Version 1)
Quarter: 2014Q2

REPORT INFORMATION
  Report Type: Spontaneous
  Country: US (occurrence: US)
  Receive Date: 20140410
  Receipt Date: 20140410
  Transmission Date: 20141212
  Serious: No
  Sender: FDA-Public Use
  Company Number: US-009507513-1403USA013649

PATIENT
  Age: 4 Year
  Sex: Male
  Weight: 20.86 kg

DRUGS (3)
  1. CLARITIN ORAL SOLUTION [Suspect]
     Indication: SEASONAL ALLERGY
     Dosage: 5 MG, QD
     Route: 048
     Dates: start: 201403
  2. CLARITIN ORAL SOLUTION [Suspect]
     Dosage: 5 MG, BID
     Route: 048
     Dates: start: 20140313
  3. PREVACID [Concomitant]
     Indication: PRODUCT USED FOR UNKNOWN INDICATION
     Dosage: 15 MG, BID

REACTIONS (1)
  - Accidental overdose [Unknown]
